FAERS Safety Report 9323445 (Version 1)
Quarter: 2013Q2

REPORT INFORMATION
  Report Type: Spontaneous
  Country: US (occurrence: US)
  Receive Date: 20130603
  Receipt Date: 20130603
  Transmission Date: 20140414
  Serious: No
  Sender: FDA-Public Use
  Company Number: US-PFIZER INC-2013167319

PATIENT
  Sex: Male

DRUGS (2)
  1. LYRICA [Suspect]
     Indication: NERVE INJURY
     Dosage: 100 MG, UNK (2-3 TIMES A DAY)
  2. LYRICA [Suspect]
     Dosage: 200 MG, UNK (2-3 TIMES A DAY)

REACTIONS (2)
  - Pain in extremity [Unknown]
  - Rhinorrhoea [Unknown]
